FAERS Safety Report 5667493-3 (Version None)
Quarter: 2008Q1

REPORT INFORMATION
  Report Type: 
  Country: None (occurrence: None)
  Receive Date: 20080315
  Receipt Date: 20080123
  Transmission Date: 20080703
  Serious: No
  Sender: FDA-Public Use
  Company Number: US-ABBOTT-08P-163-0435115-00

PATIENT
  Weight: 139.83 kg

DRUGS (4)
  1. HUMIRA [Suspect]
     Indication: CROHN'S DISEASE
     Route: 058
     Dates: start: 20080122
  2. MESALAMINE [Concomitant]
     Indication: CROHN'S DISEASE
     Route: 048
  3. AZATHIOPRINE [Concomitant]
     Indication: CROHN'S DISEASE
     Route: 048
  4. PREDNISONE [Concomitant]
     Indication: CROHN'S DISEASE
     Route: 048

REACTIONS (1)
  - ACCIDENTAL EXPOSURE [None]
